FAERS Safety Report 8033808-4 (Version None)
Quarter: 2012Q1

REPORT INFORMATION
  Report Type: 
  Country: None (occurrence: None)
  Receive Date: 20120110
  Receipt Date: 20111230
  Transmission Date: 20120608
  Serious: Yes (Other)
  Sender: FDA-Public Use
  Company Number: JP-WATSON-2011-23183

PATIENT
  Age: 33 Year
  Sex: Male
  Weight: 56.3 kg

DRUGS (2)
  1. CYCLOSPORINE [Suspect]
     Indication: INTERSTITIAL LUNG DISEASE
  2. CYCLOSPORINE [Suspect]
     Indication: POLYMYOSITIS

REACTIONS (1)
  - LIVER INJURY [None]
